FAERS Safety Report 9284702 (Version 25)
Quarter: 2014Q4

REPORT INFORMATION
  Report Type: Report from Study
  Country: CA (occurrence: CA)
  Receive Date: 20130513
  Receipt Date: 20141105
  Transmission Date: 20150529
  Serious: Yes (Hospitalization, Other)
  Sender: FDA-Public Use
  Company Number: CA-ROCHE-1154278

PATIENT
  Age: 51 Year
  Sex: Male
  Weight: 107 kg

DRUGS (23)
  1. VITAMIN D3 [Concomitant]
     Active Substance: CHOLECALCIFEROL
  2. VITAMIN B12 [Concomitant]
     Active Substance: CYANOCOBALAMIN
  3. HYDROMORPHONE [Concomitant]
     Active Substance: HYDROMORPHONE
  4. PREDNISONE. [Concomitant]
     Active Substance: PREDNISONE
  5. FUROSEMIDE. [Concomitant]
     Active Substance: FUROSEMIDE
  6. ASA [Concomitant]
     Active Substance: ASPIRIN
  7. VENTOLIN [Concomitant]
     Active Substance: ALBUTEROL SULFATE
     Route: 065
  8. VENTOLIN [Concomitant]
     Active Substance: ALBUTEROL SULFATE
  9. METFORMIN [Concomitant]
     Active Substance: METFORMIN HYDROCHLORIDE
  10. ACETAMINOPHEN. [Concomitant]
     Active Substance: ACETAMINOPHEN
     Indication: PREMEDICATION
     Route: 048
     Dates: start: 20121107
  11. TYLENOL [Concomitant]
     Active Substance: ACETAMINOPHEN
     Indication: ARTHRITIS
  12. MICARDIS [Concomitant]
     Active Substance: TELMISARTAN
  13. ACETAMINOFEN [Concomitant]
     Active Substance: ACETAMINOPHEN
     Indication: PREMEDICATION
     Route: 048
     Dates: start: 20121107
  14. ATORVASTATIN [Concomitant]
     Active Substance: ATORVASTATIN
  15. RITUXAN [Suspect]
     Active Substance: RITUXIMAB
     Indication: RHEUMATOID ARTHRITIS
     Dosage: LAST DOSE RITUXIMAB PRIOR TO SAE WAS ON 25/JUL/2013.
     Route: 042
     Dates: start: 20121107
  16. AMLODIPINE [Concomitant]
     Active Substance: AMLODIPINE BESYLATE
  17. BENADRYL [Concomitant]
     Active Substance: DIPHENHYDRAMINE HYDROCHLORIDE
     Indication: PREMEDICATION
     Route: 048
     Dates: start: 20121107
  18. ACTEMRA [Suspect]
     Active Substance: TOCILIZUMAB
     Indication: RHEUMATOID ARTHRITIS
     Route: 042
     Dates: start: 20110906, end: 20120719
  19. GLYBURIDE. [Concomitant]
     Active Substance: GLYBURIDE
  20. NITRO SPRAY [Concomitant]
     Dosage: AS REQUIRED
     Route: 065
  21. CELEBREX [Concomitant]
     Active Substance: CELECOXIB
  22. CALCIUM CARBONATE. [Concomitant]
     Active Substance: CALCIUM CARBONATE
  23. RABEPRAZOLE [Concomitant]
     Active Substance: RABEPRAZOLE

REACTIONS (13)
  - Nail operation [Unknown]
  - Pulmonary oedema [Unknown]
  - Post procedural discharge [Not Recovered/Not Resolved]
  - Dyspnoea [Recovering/Resolving]
  - Nail infection [Not Recovered/Not Resolved]
  - Localised infection [Not Recovered/Not Resolved]
  - Body temperature increased [Unknown]
  - Heart rate increased [Unknown]
  - Cough [Recovering/Resolving]
  - Osteomyelitis [Recovered/Resolved]
  - Infusion related reaction [Unknown]
  - Furuncle [Recovered/Resolved]
  - White blood cell count increased [Unknown]

NARRATIVE: CASE EVENT DATE: 2012
